FAERS Safety Report 25665419 (Version 1)
Quarter: 2025Q3

REPORT INFORMATION
  Report Type: Spontaneous
  Country: GB (occurrence: GB)
  Receive Date: 20250811
  Receipt Date: 20250811
  Transmission Date: 20251021
  Serious: Yes (Other)
  Sender: PFIZER
  Company Number: None

PATIENT
  Age: 64 Year
  Sex: Female

DRUGS (16)
  1. PIPERACILLIN SODIUM\TAZOBACTAM SODIUM [Suspect]
     Active Substance: PIPERACILLIN SODIUM\TAZOBACTAM SODIUM
  2. NEBIVOLOL [Concomitant]
     Active Substance: NEBIVOLOL
  3. HYDRALAZINE [Concomitant]
     Active Substance: HYDRALAZINE HYDROCHLORIDE
  4. ATORVASTATIN [Concomitant]
     Active Substance: ATORVASTATIN
  5. ARANESP [Concomitant]
     Active Substance: DARBEPOETIN ALFA
  6. EPINEPHRINE [Concomitant]
     Active Substance: EPINEPHRINE
  7. ISOSORBIDE [Concomitant]
     Active Substance: ISOSORBIDE
  8. LANSOPRAZOLE [Concomitant]
     Active Substance: LANSOPRAZOLE
  9. LANTUS [Concomitant]
     Active Substance: INSULIN GLARGINE
  10. INSULIN ASPART [Concomitant]
     Active Substance: INSULIN ASPART
  11. SEVELAMER [Concomitant]
     Active Substance: SEVELAMER
  12. CLOPIDOGREL [Concomitant]
     Active Substance: CLOPIDOGREL BISULFATE
  13. SODIUM BICARBONATE [Concomitant]
     Active Substance: SODIUM BICARBONATE
  14. QUETIAPINE [Concomitant]
     Active Substance: QUETIAPINE
  15. EZETIMIBE [Concomitant]
     Active Substance: EZETIMIBE
  16. ASPIRIN [Concomitant]
     Active Substance: ASPIRIN

REACTIONS (4)
  - Cardiac arrest [Unknown]
  - Anaphylactic reaction [Unknown]
  - Sepsis [Unknown]
  - Hypovolaemia [Unknown]
